FAERS Safety Report 20256947 (Version 1)
Quarter: 2021Q4

REPORT INFORMATION
  Report Type: Spontaneous
  Country: US (occurrence: US)
  Receive Date: 20211230
  Receipt Date: 20211230
  Transmission Date: 20220304
  Serious: Yes (Other)
  Sender: FDA-Public Use
  Company Number: US-PURDUE-USA-2020-0231789

PATIENT
  Sex: Male

DRUGS (2)
  1. OXYCODONE HYDROCHLORIDE [Suspect]
     Active Substance: OXYCODONE HYDROCHLORIDE
     Indication: Injury
     Dosage: 7.5 MG, UNK
     Route: 065
  2. HYDROCODONE BITARTRATE [Suspect]
     Active Substance: HYDROCODONE BITARTRATE
     Indication: Injury
     Dosage: 7.5 MG, UNK
     Route: 065

REACTIONS (6)
  - Drug dependence [Unknown]
  - Drug abuse [Unknown]
  - Mental status changes [Unknown]
  - Disturbance in attention [Unknown]
  - Impaired work ability [Unknown]
  - Fear [Unknown]
